FAERS Safety Report 5547777-X (Version None)
Quarter: 2007Q4

REPORT INFORMATION
  Report Type: 
  Country: None (occurrence: None)
  Receive Date: 20071211
  Receipt Date: 20070302
  Transmission Date: 20080405
  Serious: No
  Sender: FDA-Public Use
  Company Number: US-AMGEN-KDL213496

PATIENT
  Sex: Female

DRUGS (2)
  1. ENBREL [Suspect]
     Indication: PSORIATIC ARTHROPATHY
     Route: 058
     Dates: start: 20060512
  2. METHOTREXATE [Concomitant]
     Dates: start: 20050101

REACTIONS (3)
  - ARTHRALGIA [None]
  - DYSPEPSIA [None]
  - INSOMNIA [None]
